FAERS Safety Report 24149226 (Version 1)
Quarter: 2024Q3

REPORT INFORMATION
  Report Type: Spontaneous
  Country: TR (occurrence: TR)
  Receive Date: 20240729
  Receipt Date: 20240729
  Transmission Date: 20241017
  Serious: Yes (Other)
  Sender: NOVARTIS
  Company Number: TR-002147023-NVSC2024TR057290

PATIENT
  Age: 38 Year
  Sex: Female

DRUGS (1)
  1. TRILEPTAL [Suspect]
     Active Substance: OXCARBAZEPINE
     Indication: Epilepsy
     Dosage: UNK (FOR 20 YEARS)
     Route: 065

REACTIONS (5)
  - Disease recurrence [Unknown]
  - Drug dependence [Unknown]
  - Product supply issue [Unknown]
  - Product availability issue [Unknown]
  - Maternal exposure during pregnancy [Unknown]
